FAERS Safety Report 4431274-9 (Version None)
Quarter: 2004Q3

REPORT INFORMATION
  Report Type: 
  Country: None (occurrence: None)
  Receive Date: 20040817
  Receipt Date: 20040730
  Transmission Date: 20050211
  Serious: Yes (Hospitalization)
  Sender: FDA-Public Use
  Company Number: EMADSS2003003363

PATIENT
  Age: 2 Year
  Sex: Female
  Weight: 13.8 kg

DRUGS (1)
  1. IMODIUM [Suspect]
     Indication: GASTROENTERITIS
     Dosage: 0.42 MG, 3 IN 1 DAY, ORAL
     Route: 048
     Dates: start: 20030206, end: 20030206

REACTIONS (7)
  - ASPARTATE AMINOTRANSFERASE INCREASED [None]
  - DEPRESSED LEVEL OF CONSCIOUSNESS [None]
  - LOSS OF CONSCIOUSNESS [None]
  - PALLOR [None]
  - POST LUMBAR PUNCTURE SYNDROME [None]
  - SOMNOLENCE [None]
  - WEIGHT DECREASED [None]
